FAERS Safety Report 9958702 (Version 1)
Quarter: 2014Q1

REPORT INFORMATION
  Report Type: Spontaneous
  Country: FR (occurrence: None)
  Receive Date: 20140228
  Receipt Date: 20140228
  Transmission Date: 20141002
  Serious: Yes (Hospitalization)
  Sender: FDA-Public Use
  Company Number: FK201400587

PATIENT
  Age: 70 Year
  Sex: Male

DRUGS (10)
  1. PIPERACILLIN / TAZOBACTAM [Suspect]
     Indication: ANTIBIOTIC THERAPY
     Route: 042
     Dates: start: 20131226, end: 20140113
  2. VANCOMYCIN [Suspect]
     Indication: PRODUCT USED FOR UNKNOWN INDICATION
  3. SPIRIVA (TIOTROPIUM BROMIDE) (TIOTROPIUM BROMIDE) [Concomitant]
  4. IPRATROPIUM (IPRATROPIUM) [Concomitant]
  5. EUPANTOL (PANTOPRAZOLE SODIUM SESQUIHYDRATE) (PANTOPRAZOLE SODIUM SESQUIHYDRATE) [Concomitant]
  6. KARDEGIC (ACETYLSALICYLATE LYSINE) (ACETYLSALICYLATE LYSINE) [Concomitant]
  7. NOVATREX (METHOTREXATE) (METHOTREXATE) [Concomitant]
  8. TERBUTALINE (TERBUTALINE) [Concomitant]
  9. AMLODIPINE (AMLODIPINE) [Concomitant]
  10. LISINOPRIL ANHYDRE (LISINOPRIL) (LISINOPRIL) [Concomitant]

REACTIONS (4)
  - Drug reaction with eosinophilia and systemic symptoms [None]
  - Renal failure acute [None]
  - Dialysis [None]
  - Anaemia [None]
